FAERS Safety Report 8996102 (Version 1)
Quarter: 2013Q1

REPORT INFORMATION
  Report Type: Spontaneous
  Country: US (occurrence: US)
  Receive Date: 20130103
  Receipt Date: 20130103
  Transmission Date: 20140127
  Serious: No
  Sender: FDA-Public Use
  Company Number: US-ABBOTT-12P-163-1008889-00

PATIENT
  Sex: Female
  Weight: 92.62 kg

DRUGS (5)
  1. SYNTHROID [Suspect]
     Indication: HYPOTHYROIDISM
     Dates: start: 1977
  2. CARDIZEM [Concomitant]
     Indication: HEART RATE IRREGULAR
  3. METFORMIN [Concomitant]
     Indication: DIABETES MELLITUS
  4. ENALAPRIL [Concomitant]
     Indication: HYPERTENSION
  5. COMBIVENT [Concomitant]
     Indication: PRODUCT USED FOR UNKNOWN INDICATION

REACTIONS (1)
  - Alopecia [Not Recovered/Not Resolved]
